FAERS Safety Report 6177220-1 (Version None)
Quarter: 2009Q2

REPORT INFORMATION
  Report Type: 
  Country: None (occurrence: None)
  Receive Date: 20090504
  Receipt Date: 20090423
  Transmission Date: 20091009
  Serious: Yes (Hospitalization)
  Sender: FDA-Public Use
  Company Number: PHHY2009GB15546

PATIENT
  Age: 26 Year
  Sex: Male

DRUGS (8)
  1. CARBAMAZEPINE [Suspect]
     Dosage: UNK
     Dates: start: 20090301
  2. DULCOLAX [Suspect]
     Indication: CONSTIPATION
     Dosage: UNK
     Route: 054
  3. BACLOFEN [Concomitant]
  4. FERROUS SULFATE TAB [Concomitant]
     Indication: ANAEMIA
     Route: 048
  5. LAMOTRIGINE [Concomitant]
     Indication: EPILEPSY
     Route: 048
  6. NULYTELY [Concomitant]
     Indication: CONSTIPATION
     Route: 048
  7. OMEPRAZOLE [Concomitant]
     Indication: GASTROINTESTINAL HAEMORRHAGE
     Route: 048
  8. TEGRETOL [Concomitant]

REACTIONS (5)
  - BONE MARROW FAILURE [None]
  - GASTROINTESTINAL HAEMORRHAGE [None]
  - MELAENA [None]
  - PANCYTOPENIA [None]
  - WHITE BLOOD CELL COUNT DECREASED [None]
